FAERS Safety Report 21081707 (Version 2)
Quarter: 2023Q4

REPORT INFORMATION
  Report Type: Spontaneous
  Country: US (occurrence: US)
  Receive Date: 20220714
  Receipt Date: 20231120
  Transmission Date: 20240110
  Serious: No
  Sender: FDA-Public Use
  Company Number: US-PFIZER INC-202200829697

PATIENT
  Age: 72 Year
  Sex: Female

DRUGS (3)
  1. XELJANZ [Suspect]
     Active Substance: TOFACITINIB CITRATE
     Indication: Rheumatoid arthritis
     Dosage: 5 MG, 1X/DAY
     Route: 048
     Dates: start: 20200101
  2. XELJANZ [Suspect]
     Active Substance: TOFACITINIB CITRATE
     Dosage: 5 MG, 1X/DAY
     Route: 048
     Dates: start: 202205
  3. XELJANZ [Suspect]
     Active Substance: TOFACITINIB CITRATE
     Dosage: ONCE EVERY OTHER DAY
     Route: 048

REACTIONS (4)
  - Neuralgia [Recovering/Resolving]
  - Muscular weakness [Recovering/Resolving]
  - Muscle contractions involuntary [Recovering/Resolving]
  - Intentional product misuse [Unknown]
